FAERS Safety Report 4758789-8 (Version None)
Quarter: 2005Q3

REPORT INFORMATION
  Report Type: 
  Country: None (occurrence: None)
  Receive Date: 20050901
  Receipt Date: 20050825
  Transmission Date: 20060218
  Serious: Yes (Hospitalization)
  Sender: FDA-Public Use
  Company Number: US-ROCHE-415696

PATIENT
  Age: 3 Year
  Sex: Male
  Weight: 14 kg

DRUGS (10)
  1. VALCYTE [Suspect]
     Dosage: ^VERY NONCOMPLIANT PATIENT^
     Route: 048
     Dates: start: 20050715
  2. CYCLOSPORINE [Concomitant]
  3. VASOTEC RPD [Concomitant]
  4. CATAPRES [Concomitant]
  5. INDERAL [Concomitant]
  6. LASIX [Concomitant]
  7. DIFLUCAN [Concomitant]
  8. ZANTAC [Concomitant]
  9. MAGNESIUM GLUCONATE [Concomitant]
  10. DILANTIN [Concomitant]

REACTIONS (3)
  - CYTOMEGALOVIRUS TEST [None]
  - TREATMENT NONCOMPLIANCE [None]
  - VIRAL LOAD INCREASED [None]
